FAERS Safety Report 6232452-9 (Version None)
Quarter: 2009Q2

REPORT INFORMATION
  Report Type: 
  Country: None (occurrence: None)
  Receive Date: 20090617
  Receipt Date: 20090610
  Transmission Date: 20091009
  Serious: Yes (Other)
  Sender: FDA-Public Use
  Company Number: JP-ROCHE-638135

PATIENT
  Sex: Male

DRUGS (2)
  1. ROCEPHIN [Suspect]
     Indication: PNEUMONIA BACTERIAL
     Route: 042
     Dates: start: 20090513, end: 20090515
  2. MEROPEN [Suspect]
     Indication: PNEUMONIA BACTERIAL
     Route: 042

REACTIONS (1)
  - INTERSTITIAL LUNG DISEASE [None]
